FAERS Safety Report 10203637 (Version 2)
Quarter: 2014Q2

REPORT INFORMATION
  Report Type: Spontaneous
  Country: NO (occurrence: None)
  Receive Date: 20140523
  Receipt Date: 20140619
  Transmission Date: 20141212
  Serious: Yes (Other)
  Sender: FDA-Public Use
  Company Number: 2014-NO-006046

PATIENT
  Age: 32 Year
  Sex: Male

DRUGS (1)
  1. KIDROLASE [Suspect]
     Indication: NON-HODGKIN^S LYMPHOMA
     Dosage: UNK

REACTIONS (3)
  - Osteonecrosis [None]
  - Stem cell transplant [None]
  - Osteonecrosis [None]
